FAERS Safety Report 14698979 (Version 1)
Quarter: 2018Q1

REPORT INFORMATION
  Report Type: Spontaneous
  Country: TR (occurrence: TR)
  Receive Date: 20180330
  Receipt Date: 20180330
  Transmission Date: 20180509
  Serious: Yes (Death, Other)
  Sender: FDA-Public Use
  Company Number: TR-CIPLA LTD.-2018TR11957

PATIENT

DRUGS (13)
  1. CARBOPLATIN. [Suspect]
     Active Substance: CARBOPLATIN
     Indication: TESTICULAR GERM CELL TUMOUR
     Dosage: 700 MG/M2, DAYS 1 TO 3
     Route: 065
  2. ACYCLOVIR. [Suspect]
     Active Substance: ACYCLOVIR
     Indication: ANTIBIOTIC PROPHYLAXIS
     Dosage: UNK
     Route: 065
  3. FLUCONAZOLE. [Suspect]
     Active Substance: FLUCONAZOLE
     Indication: ANTIBIOTIC PROPHYLAXIS
     Dosage: UNK
     Route: 065
  4. CIPROFLOXACIN. [Suspect]
     Active Substance: CIPROFLOXACIN
     Indication: ANTIBIOTIC PROPHYLAXIS
     Dosage: UNK
     Route: 065
  5. CISPLATIN. [Suspect]
     Active Substance: CISPLATIN
     Dosage: 60 MG/M2 PER DAY ON DAY 1, EVERY 12 DAYS
     Route: 065
  6. ETOPOSIDE. [Suspect]
     Active Substance: ETOPOSIDE
     Indication: TESTICULAR GERM CELL TUMOUR
     Dosage: 1000 MG/M2 PER DAY ON DAYS 1 TO 5
     Route: 065
  7. CISPLATIN. [Suspect]
     Active Substance: CISPLATIN
     Indication: TESTICULAR GERM CELL TUMOUR
     Dosage: 20 MG/M2, PER DAY, DAYS 1 TO 5
     Route: 065
  8. GRANULOCYTE COLONY STIMULATING FACTOR [Suspect]
     Active Substance: GRANULOCYTE COLONY-STIMULATING FACTOR NOS
     Indication: TESTICULAR GERM CELL TUMOUR
     Dosage: 10 MCG/KG/DAY, 5TH DAY
     Route: 065
  9. BLEOMYCIN SULPHATE [Suspect]
     Active Substance: BLEOMYCIN SULFATE
     Indication: TESTICULAR GERM CELL TUMOUR
     Dosage: 30 MG/DAY ON DAY 1, 8 AND 15
     Route: 065
  10. MESNA. [Suspect]
     Active Substance: MESNA
     Indication: TESTICULAR GERM CELL TUMOUR
     Dosage: 1000 (UNITS UNSPECIFIED) ON DAYS 1, 2 AND 3
     Route: 065
  11. ETOPOSIDE. [Suspect]
     Active Substance: ETOPOSIDE
     Dosage: 750 MG/M2, ON DAYS 1 TO 3
     Route: 065
  12. PACLITAXEL. [Suspect]
     Active Substance: PACLITAXEL
     Indication: TESTICULAR GERM CELL TUMOUR
     Dosage: 175 MG/M2 PER DAY, ON DAY 1
     Route: 065
  13. IFOSFAMIDE. [Suspect]
     Active Substance: IFOSFAMIDE
     Indication: TESTICULAR GERM CELL TUMOUR
     Dosage: 1000 MG/M2 PER DAY, ON DAYS 1, 2 AND 3
     Route: 065

REACTIONS (3)
  - Malignant neoplasm progression [Unknown]
  - Multiple organ dysfunction syndrome [Fatal]
  - Sepsis [Fatal]
